FAERS Safety Report 7530319-7 (Version None)
Quarter: 2011Q2

REPORT INFORMATION
  Report Type: 
  Country: None (occurrence: None)
  Receive Date: 20110607
  Receipt Date: 20110527
  Transmission Date: 20111010
  Serious: Yes (Hospitalization)
  Sender: FDA-Public Use
  Company Number: US-ASTRAZENECA-2010SE60569

PATIENT
  Age: 74 Year
  Sex: Female
  Weight: 72.6 kg

DRUGS (8)
  1. SYMBICORT [Suspect]
     Dosage: 160/4.5, TWO PUFFS, BID
     Route: 055
  2. PRISTIQ [Concomitant]
     Indication: ANXIETY
  3. TIZANIDINE HCL [Concomitant]
     Indication: MUSCLE SPASMS
  4. SYMBICORT [Suspect]
     Dosage: 160-4.5 MCG DAILY
     Route: 055
  5. SYMBICORT [Suspect]
     Dosage: 80/4.5 MCG
     Route: 055
     Dates: start: 20090101
  6. LISINOPRIL [Concomitant]
     Indication: BLOOD PRESSURE
  7. PROAIR HFA [Concomitant]
     Dosage: INHALER
  8. AMITRIPTYLINE HCL [Concomitant]

REACTIONS (2)
  - PULMONARY THROMBOSIS [None]
  - DYSPNOEA [None]
